FAERS Safety Report 6428817-2 (Version None)
Quarter: 2009Q4

REPORT INFORMATION
  Report Type: 
  Country: None (occurrence: None)
  Receive Date: 20091105
  Receipt Date: 20091026
  Transmission Date: 20100525
  Serious: Yes (Hospitalization)
  Sender: FDA-Public Use
  Company Number: CHNY2009DE03277

PATIENT
  Sex: Male
  Weight: 86.6 kg

DRUGS (17)
  1. NICOTINELL TTS (NCH) [Suspect]
     Indication: CHRONIC OBSTRUCTIVE PULMONARY DISEASE
     Dosage: 21 MG, QD
     Route: 062
     Dates: start: 20090801, end: 20090801
  2. NICOTINELL TTS (NCH) [Suspect]
     Indication: SMOKING CESSATION THERAPY
  3. LITHIUM CARBONATE [Concomitant]
     Indication: DEPRESSION
  4. OXYGEN [Concomitant]
     Indication: CHRONIC OBSTRUCTIVE PULMONARY DISEASE
  5. PIPAMPERONE [Concomitant]
     Dosage: 20 MG, QD
     Dates: end: 20090819
  6. ZYPREXA [Concomitant]
     Dosage: UNK
     Dates: start: 20090812, end: 20090821
  7. MICARDIS [Concomitant]
     Dosage: 40 MG, UNK
  8. CITALOPRAM HYDROBROMIDE [Concomitant]
     Dosage: 20 MG, UNK
     Dates: end: 20090819
  9. SIMVAHEXAL [Concomitant]
     Dosage: 40 MG, UNK
  10. LITHIUM CARBONATE [Concomitant]
  11. AAS [Concomitant]
     Dosage: 100 MG, UNK
  12. DYTIDE [Concomitant]
     Dosage: UNK
  13. SPIRIVA [Concomitant]
     Dosage: UNK
  14. THYROXIN [Concomitant]
     Dosage: UNK
  15. BISOHEXAL [Concomitant]
     Dosage: UNK
  16. SYMBICORT [Concomitant]
     Dosage: UNK
  17. DIAZEPAM [Concomitant]
     Dosage: UP TO 10 MG FROM 14 TO 21 AUG

REACTIONS (10)
  - ABNORMAL BEHAVIOUR [None]
  - AGITATION [None]
  - DISTURBANCE IN ATTENTION [None]
  - NERVOUSNESS [None]
  - OVERDOSE [None]
  - PNEUMONIA [None]
  - RESTLESSNESS [None]
  - TOBACCO POISONING [None]
  - TREATMENT NONCOMPLIANCE [None]
  - TREMOR [None]
